FAERS Safety Report 9317910 (Version 1)
Quarter: 2013Q2

REPORT INFORMATION
  Report Type: Spontaneous
  Country: US (occurrence: US)
  Receive Date: 20130530
  Receipt Date: 20130530
  Transmission Date: 20140414
  Serious: No
  Sender: FDA-Public Use
  Company Number: US-GLAXOSMITHKLINE-A0995297A

PATIENT
  Age: 68 Year
  Sex: Female

DRUGS (3)
  1. VENTOLIN [Suspect]
     Indication: BRONCHOSPASM
     Route: 055
  2. SPIRIVA [Concomitant]
  3. ADVAIR [Concomitant]

REACTIONS (6)
  - Drug ineffective [Unknown]
  - Chest discomfort [Unknown]
  - Dyspnoea [Unknown]
  - Malaise [Unknown]
  - Overdose [Unknown]
  - Product quality issue [Unknown]
